FAERS Safety Report 16408320 (Version 1)
Quarter: 2019Q2

REPORT INFORMATION
  Report Type: Spontaneous
  Country: US (occurrence: US)
  Receive Date: 20190610
  Receipt Date: 20190610
  Transmission Date: 20190711
  Serious: No
  Sender: FDA-Public Use
  Company Number: US-LUPIN PHARMACEUTICALS INC.-2019-01730

PATIENT
  Sex: Female

DRUGS (1)
  1. TEMAZEPAM CAPSULES, USP, 15 MG [Suspect]
     Active Substance: TEMAZEPAM
     Indication: PRODUCT USED FOR UNKNOWN INDICATION
     Dosage: 2 DOSAGE FORM, (EVERY NIGHT AT BEDTIME)
     Route: 048

REACTIONS (3)
  - Skin irritation [Unknown]
  - Pruritus [Unknown]
  - Alopecia [Unknown]
